FAERS Safety Report 16793537 (Version 1)
Quarter: 2019Q3

REPORT INFORMATION
  Report Type: Spontaneous
  Country: US (occurrence: US)
  Receive Date: 20190911
  Receipt Date: 20190911
  Transmission Date: 20191005
  Serious: No
  Sender: FDA-Public Use
  Company Number: US-ELI_LILLY_AND_COMPANY-US201909002807

PATIENT
  Sex: Female

DRUGS (2)
  1. NOVOLIN 30R INSULIN HUMAN;INSULIN HUMAN INJE [Concomitant]
     Indication: TYPE 2 DIABETES MELLITUS
  2. TRULICITY [Suspect]
     Active Substance: DULAGLUTIDE
     Indication: TYPE 2 DIABETES MELLITUS
     Dosage: 1.5 MG, UNKNOWN
     Route: 058
     Dates: start: 201810, end: 20190814

REACTIONS (3)
  - Crying [Recovering/Resolving]
  - Lacrimation increased [Recovering/Resolving]
  - Emotional disorder [Recovering/Resolving]
